FAERS Safety Report 19308814 (Version 5)
Quarter: 2022Q2

REPORT INFORMATION
  Report Type: Report from Study
  Country: IT (occurrence: IT)
  Receive Date: 20210526
  Receipt Date: 20220625
  Transmission Date: 20220721
  Serious: Yes (Life-Threatening, Hospitalization, Other)
  Sender: FDA-Public Use
  Company Number: IT-TAKEDA-2020TUS056009

PATIENT
  Age: 73 Year
  Sex: Female

DRUGS (10)
  1. TEDUGLUTIDE [Suspect]
     Active Substance: TEDUGLUTIDE
     Indication: Short-bowel syndrome
     Dosage: 1.5 MILLIGRAM, QD
     Route: 042
     Dates: start: 201802
  2. TEDUGLUTIDE [Suspect]
     Active Substance: TEDUGLUTIDE
     Indication: Short-bowel syndrome
     Dosage: 1.5 MILLIGRAM, QD
     Route: 042
     Dates: start: 201802
  3. TEDUGLUTIDE [Suspect]
     Active Substance: TEDUGLUTIDE
     Indication: Short-bowel syndrome
     Dosage: 1.5 MILLIGRAM, QD
     Route: 042
     Dates: start: 201802
  4. TEDUGLUTIDE [Suspect]
     Active Substance: TEDUGLUTIDE
     Indication: Short-bowel syndrome
     Dosage: 1.5 MILLIGRAM, QD
     Route: 042
     Dates: start: 201802
  5. DEURSIL [Concomitant]
     Active Substance: URSODIOL
     Indication: Cell death
     Dosage: 300 MILLIGRAM, QD
     Route: 048
     Dates: start: 20210119
  6. LANSOPRAZOLE [Concomitant]
     Active Substance: LANSOPRAZOLE
     Indication: Gastrointestinal ulcer
     Dosage: 30 MILLIGRAM, QD
     Route: 048
     Dates: start: 20210119
  7. FUROSEMIDE [Concomitant]
     Active Substance: FUROSEMIDE
     Indication: Hypertension
     Dosage: 25 MILLIGRAM, QD
     Route: 048
     Dates: start: 202011
  8. CATAPRESAN CAMPUS [Concomitant]
     Indication: Angina pectoris
     Dosage: 5 MILLIGRAM, 1/WEEK
     Route: 062
     Dates: start: 202011
  9. ENOXAPARIN SODIUM [Concomitant]
     Active Substance: ENOXAPARIN SODIUM
     Indication: Prophylaxis
     Dosage: 4000 INTERNATIONAL UNIT, BID
     Route: 042
     Dates: start: 2020
  10. ROSUVASTATIN CALCIUM [Concomitant]
     Active Substance: ROSUVASTATIN CALCIUM
     Indication: Hypercholesterolaemia
     Dosage: 40 MILLIGRAM, QD
     Route: 048
     Dates: start: 2018

REACTIONS (8)
  - Aortic stenosis [Recovered/Resolved]
  - Stoma site haemorrhage [Not Recovered/Not Resolved]
  - Cell death [Recovered/Resolved]
  - Fatigue [Not Recovered/Not Resolved]
  - Arthralgia [Not Recovered/Not Resolved]
  - Subcutaneous haematoma [Not Recovered/Not Resolved]
  - Nausea [Recovered/Resolved]
  - Abdominal pain [Not Recovered/Not Resolved]

NARRATIVE: CASE EVENT DATE: 20201001
